FAERS Safety Report 7361858-X (Version None)
Quarter: 2011Q1

REPORT INFORMATION
  Report Type: 
  Country: None (occurrence: None)
  Receive Date: 20110318
  Receipt Date: 20100921
  Transmission Date: 20110831
  Serious: Yes (Hospitalization, Other)
  Sender: FDA-Public Use
  Company Number: US-BAYER-201016361NA

PATIENT
  Sex: Female
  Weight: 68.027 kg

DRUGS (8)
  1. EFFEXOR XR [Concomitant]
     Indication: POSTPARTUM DEPRESSION
     Dosage: 150 MG, CAP
     Dates: start: 19950101
  2. LISINOPRIL AND HYDROCHLOROTHIAZIDE [Concomitant]
     Indication: HYPERTENSION
     Dosage: 12.5 MG, BID (20/12.5 MG TAB)
     Dates: start: 20070101
  3. VITAMIN B COMPLEX CAP [Concomitant]
     Dosage: 1 TAB, QD
     Route: 048
  4. YASMIN [Suspect]
     Indication: PREMENSTRUAL SYNDROME
     Dosage: UNK
     Route: 048
     Dates: start: 20080301, end: 20090201
  5. ALPRAZOLAM [Concomitant]
     Dosage: 0.5 MG TAB, PRN
  6. FISH OIL [Concomitant]
     Dosage: 1200 MG, QD
     Route: 048
  7. XANAX [Concomitant]
  8. OCELLA [Suspect]
     Indication: PREMENSTRUAL SYNDROME
     Dosage: UNK
     Route: 048
     Dates: start: 20080301, end: 20090201

REACTIONS (2)
  - PSYCHIATRIC SYMPTOM [None]
  - THROMBOPHLEBITIS SUPERFICIAL [None]
